FAERS Safety Report 7122592-4 (Version None)
Quarter: 2010Q4

REPORT INFORMATION
  Report Type: 
  Country: None (occurrence: None)
  Receive Date: 20101112
  Receipt Date: 20101022
  Transmission Date: 20110411
  Serious: Yes (Hospitalization)
  Sender: FDA-Public Use
  Company Number: 017516

PATIENT
  Sex: Female
  Weight: 80 kg

DRUGS (2)
  1. CERTOLIZUMAB PEGOL (CERTOLIZUMAB PEGOL) [Suspect]
     Indication: CROHN'S DISEASE
     Dosage: (400 MG 1X/4 WEEKS, NUMBER OF DOSES RECEIVED 68 SUBCUTANEOUS)
     Route: 058
     Dates: start: 20041206, end: 20100716
  2. TRIAMCINOLONE [Concomitant]

REACTIONS (32)
  - ABDOMINAL WALL ABSCESS [None]
  - ANKLE FRACTURE [None]
  - BACTERIAL INFECTION [None]
  - BLOOD ALBUMIN DECREASED [None]
  - BLOOD ALKALINE PHOSPHATASE INCREASED [None]
  - C-REACTIVE PROTEIN INCREASED [None]
  - CANDIDIASIS [None]
  - COLITIS [None]
  - COLONIC STENOSIS [None]
  - DYSPEPSIA [None]
  - ESCHERICHIA TEST POSITIVE [None]
  - FEMALE GENITAL TRACT FISTULA [None]
  - GAMMA-GLUTAMYLTRANSFERASE INCREASED [None]
  - HAEMOGLOBIN DECREASED [None]
  - HERNIA [None]
  - INFLAMMATION [None]
  - INSOMNIA [None]
  - MEAN CELL HAEMOGLOBIN [None]
  - MONOCYTOSIS [None]
  - NAUSEA [None]
  - NEUTROPENIA [None]
  - NEUTROPHIL COUNT INCREASED [None]
  - PAIN [None]
  - PLATELET COUNT INCREASED [None]
  - POST PROCEDURAL COMPLICATION [None]
  - PROTEIN TOTAL INCREASED [None]
  - PRURITUS [None]
  - PYODERMA GANGRENOSUM [None]
  - RED BLOOD CELL COUNT INCREASED [None]
  - RED BLOOD CELL ROULEAUX FORMATION PRESENT [None]
  - STREPTOCOCCAL INFECTION [None]
  - WHITE BLOOD CELL MORPHOLOGY ABNORMAL [None]
